FAERS Safety Report 5567857-2 (Version None)
Quarter: 2007Q4

REPORT INFORMATION
  Report Type: 
  Country: None (occurrence: None)
  Receive Date: 20071220
  Receipt Date: 20071214
  Transmission Date: 20080405
  Serious: Yes (Life-Threatening, Hospitalization, Other)
  Sender: FDA-Public Use
  Company Number: GB-WYE-G00781007

PATIENT
  Age: 24 Year
  Sex: Male

DRUGS (12)
  1. SIROLIMUS [Suspect]
     Route: 048
     Dates: start: 20030818
  2. SIMVASTATIN [Suspect]
     Route: 048
     Dates: start: 20040416
  3. AZITHROMYCIN [Suspect]
     Route: 048
     Dates: start: 20040416
  4. COTRIM [Suspect]
     Route: 048
     Dates: start: 20020801
  5. TACROLIMUS [Suspect]
     Route: 048
     Dates: start: 20020813
  6. FUROSEMIDE [Suspect]
     Route: 048
     Dates: start: 20050712
  7. LANTUS [Suspect]
     Dosage: UNKNOWN
     Route: 058
     Dates: start: 20050913
  8. NOVORAPID [Suspect]
     Dosage: UNKNOWN
     Route: 058
     Dates: start: 20050913
  9. OMEPRAZOLE [Suspect]
     Route: 048
     Dates: start: 20061215
  10. PREDNISOLONE [Suspect]
     Route: 048
     Dates: start: 20020801
  11. ADALAT [Suspect]
     Route: 048
     Dates: start: 20020801
  12. FERROUS GLUCONATE [Suspect]
     Route: 048
     Dates: start: 20070723

REACTIONS (2)
  - NEPHROTIC SYNDROME [None]
  - RENAL DISORDER [None]
